FAERS Safety Report 9417346 (Version 3)
Quarter: 2013Q4

REPORT INFORMATION
  Report Type: Report from Study
  Country: US (occurrence: US)
  Receive Date: 20130724
  Receipt Date: 20131125
  Transmission Date: 20140711
  Serious: Yes (Death, Life-Threatening, Hospitalization, Other)
  Sender: FDA-Public Use
  Company Number: US-ACTELION-A-US2013-84952

PATIENT
  Age: 85 Year
  Sex: Male

DRUGS (2)
  1. VENTAVIS [Suspect]
     Indication: PULMONARY ARTERIAL HYPERTENSION
     Dosage: 5 MCG, 6-8XDAY
     Route: 055
     Dates: start: 201304
  2. ADCIRCA [Concomitant]

REACTIONS (3)
  - Death [Fatal]
  - Small intestine carcinoma metastatic [Unknown]
  - Weight decreased [Unknown]
